FAERS Safety Report 5731690-9 (Version None)
Quarter: 2008Q2

REPORT INFORMATION
  Report Type: 
  Country: None (occurrence: None)
  Receive Date: 20080508
  Receipt Date: 20080425
  Transmission Date: 20081010
  Serious: Yes (Hospitalization)
  Sender: FDA-Public Use
  Company Number: FR-ELI_LILLY_AND_COMPANY-FR200805000773

PATIENT
  Age: 65 Year
  Sex: Female

DRUGS (3)
  1. FORTEO [Suspect]
     Indication: OSTEOPOROSIS
     Dosage: 20 UG, DAILY (1/D)
     Route: 058
     Dates: start: 20070929
  2. HYDREA [Concomitant]
     Indication: MYELOPROLIFERATIVE DISORDER
     Route: 065
  3. HYDROCORTISONE [Concomitant]
     Indication: MYELOPROLIFERATIVE DISORDER
     Route: 065

REACTIONS (1)
  - PERIPHLEBITIS [None]
